FAERS Safety Report 5286482-4 (Version None)
Quarter: 2007Q1

REPORT INFORMATION
  Report Type: 
  Country: None (occurrence: None)
  Receive Date: 20070104
  Receipt Date: 20060907
  Transmission Date: 20070707
  Serious: No
  Sender: FDA-Public Use
  Company Number: BDI-008571

PATIENT
  Age: 46 Year
  Weight: 102.27 kg

DRUGS (2)
  1. MULTIHANCE [Suspect]
     Indication: HEAD INJURY
     Dosage: 20 ML ONCE IV
     Route: 042
     Dates: start: 20060823, end: 20060823
  2. MULTIHANCE [Suspect]
     Indication: NUCLEAR MAGNETIC RESONANCE IMAGING
     Dosage: 20 ML ONCE IV
     Route: 042
     Dates: start: 20060823, end: 20060823

REACTIONS (1)
  - HYPERSENSITIVITY [None]
